FAERS Safety Report 24888027 (Version 2)
Quarter: 2025Q3

REPORT INFORMATION
  Report Type: Spontaneous
  Country: JP (occurrence: JP)
  Receive Date: 20250127
  Receipt Date: 20250805
  Transmission Date: 20251020
  Serious: Yes (Life-Threatening, Other)
  Sender: STRIDES
  Company Number: JP-STRIDES ARCOLAB LIMITED-2025SP001157

PATIENT
  Age: 68 Year
  Sex: Female

DRUGS (16)
  1. PREDNISOLONE [Suspect]
     Active Substance: PREDNISOLONE
     Indication: Lymphoproliferative disorder
     Route: 065
     Dates: start: 2023
  2. PREDNISOLONE [Suspect]
     Active Substance: PREDNISOLONE
     Indication: Hypercalcaemia of malignancy
     Route: 065
     Dates: start: 2023
  3. ETOPOSIDE [Suspect]
     Active Substance: ETOPOSIDE
     Indication: Lymphoproliferative disorder
     Route: 065
     Dates: start: 2023
  4. RITUXIMAB [Suspect]
     Active Substance: RITUXIMAB
     Indication: Lymphoproliferative disorder
     Route: 065
     Dates: start: 2023
  5. RITUXIMAB [Suspect]
     Active Substance: RITUXIMAB
     Route: 065
     Dates: start: 2023
  6. RITUXIMAB [Suspect]
     Active Substance: RITUXIMAB
     Route: 065
     Dates: start: 2023
  7. POLATUZUMAB VEDOTIN [Suspect]
     Active Substance: POLATUZUMAB VEDOTIN
     Indication: Lymphoproliferative disorder
     Route: 065
     Dates: start: 2023
  8. CYCLOPHOSPHAMIDE [Suspect]
     Active Substance: CYCLOPHOSPHAMIDE
     Indication: Lymphoproliferative disorder
     Route: 065
     Dates: start: 2023
  9. CYCLOPHOSPHAMIDE [Suspect]
     Active Substance: CYCLOPHOSPHAMIDE
     Indication: Hypercalcaemia of malignancy
     Route: 065
     Dates: start: 2023
  10. ADRIAMYCIN [Suspect]
     Active Substance: DOXORUBICIN HYDROCHLORIDE
     Indication: Lymphoproliferative disorder
     Route: 065
     Dates: start: 2023
  11. METHOTREXATE [Concomitant]
     Active Substance: METHOTREXATE
     Indication: Rheumatoid arthritis
     Route: 065
     Dates: start: 201311, end: 2023
  12. METHOTREXATE [Concomitant]
     Active Substance: METHOTREXATE
     Indication: Lymphoproliferative disorder
     Route: 065
     Dates: start: 2023
  13. VINCRISTINE [Concomitant]
     Active Substance: VINCRISTINE
     Indication: Lymphoproliferative disorder
     Route: 065
     Dates: start: 2023
  14. PROCARBAZINE HYDROCHLORIDE [Concomitant]
     Active Substance: PROCARBAZINE HYDROCHLORIDE
     Indication: Lymphoproliferative disorder
     Route: 065
     Dates: start: 2023
  15. CYTARABINE [Concomitant]
     Active Substance: CYTARABINE
     Indication: Lymphoproliferative disorder
     Route: 065
     Dates: start: 2023
  16. DEXAMETHASONE [Concomitant]
     Active Substance: DEXAMETHASONE
     Indication: Lymphoproliferative disorder
     Route: 065
     Dates: start: 2023

REACTIONS (5)
  - Neutropenia [Recovered/Resolved]
  - Thrombocytopenia [Recovered/Resolved]
  - Therapy partial responder [Unknown]
  - Anaemia [Recovered/Resolved]
  - Off label use [Unknown]

NARRATIVE: CASE EVENT DATE: 20230101
